FAERS Safety Report 5016613-2 (Version None)
Quarter: 2006Q2

REPORT INFORMATION
  Report Type: 
  Country: None (occurrence: None)
  Receive Date: 20060602
  Receipt Date: 20060420
  Transmission Date: 20061013
  Serious: Yes (Hospitalization)
  Sender: FDA-Public Use
  Company Number: JP-JPN-A200601319

PATIENT
  Age: 65 Year
  Sex: Male
  Weight: 60 kg

DRUGS (3)
  1. ALKERAN [Suspect]
     Indication: MULTIPLE MYELOMA
     Dosage: 10MG PER DAY
     Route: 048
     Dates: start: 20060206, end: 20060210
  2. ALKERAN [Suspect]
     Dosage: 10MG PER DAY
     Route: 048
     Dates: start: 20060214, end: 20060218
  3. ALKERAN [Suspect]
     Dosage: 10MG PER DAY
     Route: 048
     Dates: start: 20060313, end: 20060317

REACTIONS (1)
  - INTERSTITIAL LUNG DISEASE [None]
